FAERS Safety Report 20364501 (Version 1)
Quarter: 2022Q1

REPORT INFORMATION
  Report Type: Spontaneous
  Country: US (occurrence: US)
  Receive Date: 20220122
  Receipt Date: 20220122
  Transmission Date: 20220424
  Serious: No
  Sender: FDA-Public Use
  Company Number: US-JNJFOC-20220123704

PATIENT
  Age: 50 Year
  Sex: Female

DRUGS (1)
  1. ZYRTEC [Suspect]
     Active Substance: CETIRIZINE HYDROCHLORIDE
     Indication: Multiple allergies
     Dosage: 5 MG ONE PER NIGHT
     Route: 065
     Dates: start: 20211224

REACTIONS (1)
  - Swelling of eyelid [Unknown]

NARRATIVE: CASE EVENT DATE: 20211201
